FAERS Safety Report 21087459 (Version 2)
Quarter: 2022Q3

REPORT INFORMATION
  Report Type: Spontaneous
  Country: IT (occurrence: IT)
  Receive Date: 20220715
  Receipt Date: 20220720
  Transmission Date: 20221027
  Serious: Yes (Life-Threatening, Hospitalization, Other)
  Sender: FDA-Public Use
  Company Number: None

PATIENT
  Age: 84 Year
  Sex: Male

DRUGS (6)
  1. HYDROCORTISONE [Suspect]
     Active Substance: HYDROCORTISONE
     Indication: Addison^s disease
     Dosage: 20 MILLIGRAM, PER DAY
     Route: 065
  2. HYDROCORTISONE [Suspect]
     Active Substance: HYDROCORTISONE
     Dosage: 60 MILLIGRAM (LATER DOSE REDUCED) PER DAY
     Route: 065
  3. HYDROCORTISONE [Suspect]
     Active Substance: HYDROCORTISONE
     Dosage: UNK
     Route: 065
  4. FLUDROCORTISONE [Suspect]
     Active Substance: FLUDROCORTISONE
     Indication: Addison^s disease
     Dosage: 0.05 MILLIGRAM PER DAY
     Route: 065
  5. FLUDROCORTISONE [Suspect]
     Active Substance: FLUDROCORTISONE
     Dosage: 0.1 MILLIGRAM (LATER DOSE REDUCED)PER DAY
     Route: 065
  6. FLUDROCORTISONE [Suspect]
     Active Substance: FLUDROCORTISONE
     Dosage: UNK
     Route: 065

REACTIONS (7)
  - Hypertensive emergency [Recovered/Resolved]
  - Acute respiratory failure [Unknown]
  - Acute pulmonary oedema [Unknown]
  - Metabolic alkalosis [Unknown]
  - Hypokalaemia [Unknown]
  - Cardiac failure acute [Unknown]
  - Staphylococcal sepsis [Unknown]
